FAERS Safety Report 10045493 (Version 1)
Quarter: 2014Q1

REPORT INFORMATION
  Report Type: Spontaneous
  Country: US (occurrence: US)
  Receive Date: 20140328
  Receipt Date: 20140328
  Transmission Date: 20141002
  Serious: No
  Sender: FDA-Public Use
  Company Number: US-ASTRAZENECA-2014SE15617

PATIENT
  Sex: Male

DRUGS (1)
  1. BRILINTA [Suspect]
     Indication: STENT PLACEMENT
     Route: 048
     Dates: start: 20140303

REACTIONS (3)
  - Dyspnoea [Unknown]
  - Anxiety [Unknown]
  - Blood pressure increased [Unknown]
